FAERS Safety Report 18183213 (Version 2)
Quarter: 2020Q3

REPORT INFORMATION
  Report Type: Spontaneous
  Country: US (occurrence: US)
  Receive Date: 20200821
  Receipt Date: 20200916
  Transmission Date: 20201103
  Serious: Yes (Other)
  Sender: FDA-Public Use
  Company Number: US-GILEAD-2020-0491560

PATIENT
  Age: 71 Year
  Sex: Female
  Weight: 90 kg

DRUGS (46)
  1. ENOXAPARIN [Concomitant]
     Active Substance: ENOXAPARIN
     Dosage: 100 MG
  2. TOBRAMYCIN. [Concomitant]
     Active Substance: TOBRAMYCIN
  3. MIDODRINE [Concomitant]
     Active Substance: MIDODRINE
  4. CHLOROTHIAZIDE. [Concomitant]
     Active Substance: CHLOROTHIAZIDE
  5. CEFEPIME HCL [Concomitant]
     Active Substance: CEFEPIME HYDROCHLORIDE
  6. PERFLUTREN [Concomitant]
     Active Substance: PERFLUTREN
  7. ROCURONIUM BROMIDE. [Concomitant]
     Active Substance: ROCURONIUM BROMIDE
  8. POLYETHYLENE GLYCOL [Concomitant]
     Active Substance: POLYETHYLENE GLYCOLS
  9. MIDAZOLAM HYDROCHLORIDE. [Concomitant]
     Active Substance: MIDAZOLAM HYDROCHLORIDE
  10. SOLU?CORTEF [Concomitant]
     Active Substance: HYDROCORTISONE SODIUM SUCCINATE
  11. VASOPRESSIN. [Concomitant]
     Active Substance: VASOPRESSIN
  12. PRECEDEX [Concomitant]
     Active Substance: DEXMEDETOMIDINE HYDROCHLORIDE
  13. NOREPINEPHRINE. [Concomitant]
     Active Substance: NOREPINEPHRINE
  14. FAMOTIDINE. [Concomitant]
     Active Substance: FAMOTIDINE
  15. ANGIOTENSIN II [Concomitant]
     Active Substance: ANGIOTENSIN II
  16. FENTANYL. [Concomitant]
     Active Substance: FENTANYL
  17. FUROSEMIDE. [Concomitant]
     Active Substance: FUROSEMIDE
  18. SODIUM CHLORIDE. [Concomitant]
     Active Substance: SODIUM CHLORIDE
     Dosage: 500 ML IV BOLUS
  19. PROMETHAZINE H [Concomitant]
     Route: 061
  20. MORPHINE SULF [Concomitant]
     Active Substance: MORPHINE SULFATE
  21. HEPARIN SODIUM. [Concomitant]
     Active Substance: HEPARIN SODIUM
  22. PLASMA?LYTE A [Concomitant]
     Active Substance: MAGNESIUM CHLORIDE\POTASSIUM CHLORIDE\SODIUM ACETATE\SODIUM CHLORIDE\SODIUM GLUCONATE
  23. GLUCAGON. [Concomitant]
     Active Substance: GLUCAGON
  24. ZAROXOLYN [Concomitant]
     Active Substance: METOLAZONE
  25. ACETAMINOFEN [Concomitant]
     Active Substance: ACETAMINOPHEN
  26. EPINEPHRINE. [Concomitant]
     Active Substance: EPINEPHRINE
  27. PRISMASATE [Concomitant]
     Active Substance: CALCIUM CARBONATE\CHLORIDE ION\DEXTROSE\LACTIC ACID\MAGNESIUM CHLORIDE\POTASSIUM CHLORIDE\SODIUM BICARBONATE\SODIUM CHLORIDE
  28. PANTOPRAZOLE [Concomitant]
     Active Substance: PANTOPRAZOLE
  29. HYDROXYZINE HCL [Concomitant]
     Active Substance: HYDROXYZINE HYDROCHLORIDE
  30. DEXAMETHASONE. [Concomitant]
     Active Substance: DEXAMETHASONE
  31. KETAMINE [Concomitant]
     Active Substance: KETAMINE
  32. LACTATED RINGERS SOLUTION [Concomitant]
     Active Substance: CALCIUM CHLORIDE\POTASSIUM CHLORIDE\SODIUM CHLORIDE\SODIUM LACTATE
  33. REMDESIVIR. [Suspect]
     Active Substance: REMDESIVIR
     Indication: COVID-19
     Dosage: UNK
     Route: 065
     Dates: start: 20200814, end: 20200818
  34. VANCOMYCIN [Concomitant]
     Active Substance: VANCOMYCIN
  35. ZOFRAN [Concomitant]
     Active Substance: ONDANSETRON HYDROCHLORIDE
  36. SODIUM BICARBONATE. [Concomitant]
     Active Substance: SODIUM BICARBONATE
  37. MICAFUNGIN SODIUM [Concomitant]
     Active Substance: MICAFUNGIN SODIUM
  38. METRONIDAZOLE. [Concomitant]
     Active Substance: METRONIDAZOLE
  39. ENOXAPARIN [Concomitant]
     Active Substance: ENOXAPARIN
     Dosage: 40 MG
  40. ASPIRIN (E.C.) [Concomitant]
     Active Substance: ASPIRIN
  41. MAGNESIUM SULFATE. [Concomitant]
     Active Substance: MAGNESIUM SULFATE
  42. MELATONIN [Concomitant]
     Active Substance: MELATONIN
  43. MUPIROCIN. [Concomitant]
     Active Substance: MUPIROCIN
  44. CISATRACURIUM. [Concomitant]
     Active Substance: CISATRACURIUM
  45. CEFTRIAXONE SODIUM. [Concomitant]
     Active Substance: CEFTRIAXONE SODIUM
  46. INSULIN LISPRO [Concomitant]
     Active Substance: INSULIN LISPRO

REACTIONS (1)
  - Acute kidney injury [Unknown]

NARRATIVE: CASE EVENT DATE: 20200817
